FAERS Safety Report 4521433-9 (Version None)
Quarter: 2004Q4

REPORT INFORMATION
  Report Type: 
  Country: None (occurrence: None)
  Receive Date: 20041208
  Receipt Date: 20030130
  Transmission Date: 20050328
  Serious: Yes (Death, Hospitalization, Other)
  Sender: FDA-Public Use
  Company Number: US-MERCK-0302USA00069

PATIENT
  Age: 72 Year
  Sex: Female
  Weight: 64 kg

DRUGS (18)
  1. ALBUTEROL [Concomitant]
     Route: 065
  2. SINGULAIR [Concomitant]
     Route: 065
  3. AMOXICILLIN [Concomitant]
     Route: 065
  4. CORRECTOL [Concomitant]
     Route: 065
  5. HYDROCHLOROTHIAZIDE [Concomitant]
     Route: 065
  6. ASPIRIN [Concomitant]
     Route: 065
  7. MEDROL [Concomitant]
     Route: 065
  8. MAXZIDE [Concomitant]
     Route: 065
  9. BAYCOL [Concomitant]
     Route: 065
  10. DOXEPIN HYDROCHLORIDE [Concomitant]
     Route: 065
  11. LOTENSIN [Concomitant]
     Route: 065
     Dates: start: 20010313, end: 20010709
  12. CALAN [Concomitant]
     Indication: BLOOD PRESSURE
     Route: 065
     Dates: start: 19991213
  13. DYAZIDE [Concomitant]
     Indication: HYPERTENSION
     Route: 065
     Dates: end: 20010709
  14. DYAZIDE [Concomitant]
     Indication: OEDEMA PERIPHERAL
     Route: 065
     Dates: end: 20010709
  15. PRAVACHOL [Concomitant]
     Route: 065
     Dates: start: 19980318, end: 20010709
  16. TYLENOL (CAPLET) [Concomitant]
     Route: 065
  17. VIOXX [Suspect]
     Indication: ARTHRALGIA
     Route: 048
     Dates: start: 19991213, end: 20010301
  18. VIOXX [Suspect]
     Route: 048
     Dates: start: 20010301, end: 20010701

REACTIONS (28)
  - ABDOMINAL DISCOMFORT [None]
  - ANEURYSM [None]
  - ANGIOPATHY [None]
  - ASTHMA [None]
  - BASAL CELL CARCINOMA [None]
  - BRONCHITIS [None]
  - BRONCHITIS ACUTE [None]
  - BRONCHOSPASM [None]
  - CAROTID ARTERY STENOSIS [None]
  - CEREBRAL HAEMORRHAGE [None]
  - CHEST WALL PAIN [None]
  - DEEP VEIN THROMBOSIS [None]
  - DEPRESSION [None]
  - DIZZINESS [None]
  - DYSPEPSIA [None]
  - ECZEMA [None]
  - EMOTIONAL DISTRESS [None]
  - GASTROINTESTINAL DISORDER [None]
  - HYPERTENSION [None]
  - HYPOKALAEMIA [None]
  - MITRAL VALVE INCOMPETENCE [None]
  - PUPIL FIXED [None]
  - RESPIRATORY ALKALOSIS [None]
  - SINUSITIS [None]
  - SPUTUM ABNORMAL [None]
  - TRANSIENT ISCHAEMIC ATTACK [None]
  - TRICUSPID VALVE INCOMPETENCE [None]
  - WHEEZING [None]
